FAERS Safety Report 20316237 (Version 2)
Quarter: 2022Q1

REPORT INFORMATION
  Report Type: Report from Study
  Country: US (occurrence: US)
  Receive Date: 20220110
  Receipt Date: 20220124
  Transmission Date: 20220424
  Serious: Yes (Hospitalization)
  Sender: FDA-Public Use
  Company Number: US-JNJFOC-20220105531

PATIENT
  Age: 57 Year
  Sex: Male

DRUGS (3)
  1. SPRAVATO [Suspect]
     Active Substance: ESKETAMINE
     Indication: Depression
     Dosage: ONE DOSE
     Dates: start: 20211027, end: 20211027
  2. SPRAVATO [Suspect]
     Active Substance: ESKETAMINE
     Dosage: 8 DOSES
     Dates: start: 20211029, end: 20211123
  3. SPRAVATO [Suspect]
     Active Substance: ESKETAMINE
     Dosage: RECENT DOSE
     Dates: start: 20211201, end: 20211201

REACTIONS (1)
  - COVID-19 [Unknown]
